FAERS Safety Report 5966248-X (Version None)
Quarter: 2008Q4

REPORT INFORMATION
  Report Type: 
  Country: None (occurrence: None)
  Receive Date: 20081125
  Receipt Date: 20081118
  Transmission Date: 20090506
  Serious: Yes (Death, Hospitalization)
  Sender: FDA-Public Use
  Company Number: SE-WYE-G02615108

PATIENT
  Sex: Female

DRUGS (1)
  1. TORISEL [Suspect]
     Indication: RENAL CELL CARCINOMA

REACTIONS (2)
  - DEATH [None]
  - DRUG INEFFECTIVE [None]
